FAERS Safety Report 14267665 (Version 1)
Quarter: 2017Q4

REPORT INFORMATION
  Report Type: Spontaneous
  Country: US (occurrence: US)
  Receive Date: 20171211
  Receipt Date: 20171211
  Transmission Date: 20180321
  Serious: No
  Sender: FDA-Public Use
  Company Number: US-ROCHE-1877781

PATIENT
  Sex: Female

DRUGS (20)
  1. LYRICA [Concomitant]
     Active Substance: PREGABALIN
     Indication: PRODUCT USED FOR UNKNOWN INDICATION
     Dosage: 1 IN AM AND 2 PM
     Route: 065
     Dates: start: 20141020
  2. POTASSIUM CHLORIDE. [Concomitant]
     Active Substance: POTASSIUM CHLORIDE
     Dosage: EXTENDED RE 180
     Route: 048
     Dates: start: 20140714
  3. LASIX [Concomitant]
     Active Substance: FUROSEMIDE
     Route: 048
     Dates: start: 20140714
  4. TRAMADOL. [Concomitant]
     Active Substance: TRAMADOL
     Route: 048
     Dates: start: 20141117
  5. PENTOBARBITAL SODIUM. [Concomitant]
     Active Substance: PENTOBARBITAL SODIUM
  6. VALIUM [Suspect]
     Active Substance: DIAZEPAM
     Indication: PRODUCT USED FOR UNKNOWN INDICATION
     Dosage: NO
     Route: 065
  7. SILVADENE [Concomitant]
     Active Substance: SILVER SULFADIAZINE
     Dosage: APPLY QD. TO WOUND
     Route: 061
     Dates: start: 20141107
  8. SYNTHROID [Concomitant]
     Active Substance: LEVOTHYROXINE SODIUM
     Route: 048
     Dates: start: 20140714
  9. CLOBETASOL [Concomitant]
     Active Substance: CLOBETASOL
     Dosage: PRN
     Route: 065
     Dates: start: 20141114
  10. PROTONIX [Concomitant]
     Active Substance: PANTOPRAZOLE SODIUM
     Dosage: DELAYED RELEASE (DR/EC 180
     Route: 048
     Dates: start: 20140714
  11. XANAX [Concomitant]
     Active Substance: ALPRAZOLAM
     Dosage: PRN
     Route: 048
     Dates: start: 20140714
  12. TRIMETHOPRIME [Concomitant]
     Active Substance: TRIMETHOPRIM
  13. BENICAR [Concomitant]
     Active Substance: OLMESARTAN MEDOXOMIL
     Route: 048
     Dates: start: 20140714
  14. FLONASE [Concomitant]
     Active Substance: FLUTICASONE PROPIONATE
     Dosage: 2 SPRAYS EACH NOSTRILS
     Route: 045
     Dates: start: 20140925
  15. AMARYL [Concomitant]
     Active Substance: GLIMEPIRIDE
     Route: 048
     Dates: start: 20141117
  16. CEFTIN (UNITED STATES) [Concomitant]
     Dosage: 10 DAYS
     Route: 048
     Dates: start: 20141120
  17. COUMADIN [Concomitant]
     Active Substance: WARFARIN SODIUM
     Dosage: 1/2 QD EXCEPT 1 ON MON, WED AND FRI
     Route: 065
     Dates: start: 20140731
  18. LIDODERM [Concomitant]
     Active Substance: LIDOCAINE
     Dosage: NO MORE THAN 3 PATCHES IN A 12 HR PERIOD
     Route: 065
     Dates: start: 20141128
  19. SULPHAMETHOXAZOLE [Concomitant]
     Active Substance: SULFAMETHOXAZOLE
  20. TETANUS + DIPHTHERIA [Concomitant]

REACTIONS (1)
  - Drug hypersensitivity [Unknown]
